FAERS Safety Report 18974414 (Version 1)
Quarter: 2021Q1

REPORT INFORMATION
  Report Type: Spontaneous
  Country: US (occurrence: US)
  Receive Date: 20210305
  Receipt Date: 20210305
  Transmission Date: 20210420
  Serious: No
  Sender: FDA-Public Use
  Company Number: US-SA-2021SA072019

PATIENT
  Age: 32 Year
  Sex: Female

DRUGS (2)
  1. CABLIVI [Suspect]
     Active Substance: CAPLACIZUMAB-YHDP
     Indication: THROMBOTIC MICROANGIOPATHY
     Route: 058
     Dates: start: 20210130
  2. CELEXA [CELECOXIB] [Concomitant]
     Active Substance: CELECOXIB

REACTIONS (1)
  - Product dose omission issue [Unknown]
